FAERS Safety Report 13920883 (Version 3)
Quarter: 2017Q4

REPORT INFORMATION
  Report Type: Spontaneous
  Country: US (occurrence: US)
  Receive Date: 20170830
  Receipt Date: 20171222
  Transmission Date: 20180320
  Serious: Yes (Life-Threatening, Hospitalization, Other)
  Sender: FDA-Public Use
  Company Number: US-SUN PHARMACEUTICAL INDUSTRIES LTD-2017US-143506

PATIENT
  Age: 74 Year
  Sex: Female

DRUGS (17)
  1. GLUCOSE [Suspect]
     Active Substance: DEXTROSE
     Dosage: SECOND INFUSION
     Route: 040
  2. CARVEDILOL. [Concomitant]
     Active Substance: CARVEDILOL
     Indication: HYPERTENSION
     Route: 065
  3. NPH INSULIN [Concomitant]
     Active Substance: INSULIN BEEF
     Indication: DIABETES MELLITUS
     Dosage: IN NIGHT
     Route: 065
  4. POTASSIUM CHLORIDE. [Concomitant]
     Active Substance: POTASSIUM CHLORIDE
     Indication: PRODUCT USED FOR UNKNOWN INDICATION
     Route: 065
  5. SIMVASTATIN. [Concomitant]
     Active Substance: SIMVASTATIN
     Indication: HYPERTENSION
     Route: 065
  6. ISOPHANE INSULIN [Concomitant]
     Active Substance: INSULIN NOS
     Dosage: IN NIGHT
  7. ACETYLSALICYLIC ACID [Concomitant]
     Active Substance: ASPIRIN
     Indication: PRODUCT USED FOR UNKNOWN INDICATION
  8. GLUCOSE [Suspect]
     Active Substance: DEXTROSE
     Indication: HYPOGLYCAEMIA
     Dosage: SECOND INFUSION
     Route: 040
  9. ACETYLSALICYILIC ACID [Concomitant]
     Active Substance: ASPIRIN
     Indication: PRODUCT USED FOR UNKNOWN INDICATION
     Route: 065
  10. GLUCOSE [Suspect]
     Active Substance: DEXTROSE
     Indication: HYPOGLYCAEMIA
     Dosage: FIRST INFUSION
     Route: 040
  11. GLUCOSE [Suspect]
     Active Substance: DEXTROSE
     Dosage: FIRST INFUSION
     Route: 040
  12. METOLAZONE. [Concomitant]
     Active Substance: METOLAZONE
     Indication: HYPERTENSION
     Route: 065
  13. NPH INSULIN [Concomitant]
     Active Substance: INSULIN BEEF
     Dosage: IN MORNING
     Route: 065
  14. SPIRONOLACTONE. [Suspect]
     Active Substance: SPIRONOLACTONE
     Indication: PRODUCT USED FOR UNKNOWN INDICATION
     Route: 065
  15. BUMETANIDE. [Concomitant]
     Active Substance: BUMETANIDE
     Indication: HYPERTENSION
     Route: 065
  16. ISOPHANE INSULIN [Concomitant]
     Active Substance: INSULIN NOS
     Indication: DIABETES MELLITUS
     Dosage: IN MORNING
  17. PAROXETINE. [Concomitant]
     Active Substance: PAROXETINE
     Indication: MENTAL STATUS CHANGES
     Route: 065

REACTIONS (2)
  - Cardiac arrest [Recovered/Resolved]
  - Hyperkalaemia [Unknown]
